FAERS Safety Report 13575405 (Version 1)
Quarter: 2017Q2

REPORT INFORMATION
  Report Type: Spontaneous
  Country: US (occurrence: US)
  Receive Date: 20170524
  Receipt Date: 20170524
  Transmission Date: 20170830
  Serious: Yes (Other)
  Sender: FDA-Public Use
  Company Number: US-SUN PHARMACEUTICAL INDUSTRIES LTD-2017US-141254

PATIENT
  Age: 16 Year
  Sex: Male

DRUGS (2)
  1. 131I-META-IODOBENZYLGUANIDINE [Suspect]
     Active Substance: IOBENGUANE I-131
     Indication: PARAGANGLION NEOPLASM
     Route: 065
  2. TEMOZOLOMIDE. [Suspect]
     Active Substance: TEMOZOLOMIDE
     Indication: PARAGANGLION NEOPLASM
     Dosage: UNK
     Route: 065

REACTIONS (1)
  - Drug resistance [Unknown]
